FAERS Safety Report 17039611 (Version 2)
Quarter: 2019Q4

REPORT INFORMATION
  Report Type: Report from Study
  Country: NL (occurrence: NL)
  Receive Date: 20191115
  Receipt Date: 20191202
  Transmission Date: 20200122
  Serious: Yes (Death, Hospitalization)
  Sender: FDA-Public Use
  Company Number: NL-EXELIXIS-XL18419025259

PATIENT

DRUGS (4)
  1. XL184 [Suspect]
     Active Substance: CABOZANTINIB
     Dosage: 20 MG, QD
     Route: 048
     Dates: start: 20190620, end: 20191004
  2. LEVOTHYROXINE SODIUM. [Concomitant]
     Active Substance: LEVOTHYROXINE SODIUM
     Dosage: UNK
  3. XL184 [Suspect]
     Active Substance: CABOZANTINIB
     Dosage: 40 MG, QD
     Route: 048
     Dates: start: 20190321
  4. XL184 [Suspect]
     Active Substance: CABOZANTINIB
     Indication: SALIVARY GLAND CANCER
     Dosage: 60 MG, QD
     Route: 048
     Dates: start: 20190207

REACTIONS (4)
  - Acquired tracheo-oesophageal fistula [Fatal]
  - Palmar-plantar erythrodysaesthesia syndrome [Recovering/Resolving]
  - Dysphonia [Recovering/Resolving]
  - Malignant neoplasm progression [Recovering/Resolving]

NARRATIVE: CASE EVENT DATE: 20190321
